FAERS Safety Report 8284696 (Version 4)
Quarter: 2013Q1

REPORT INFORMATION
  Report Type: Spontaneous
  Country: SE (occurrence: SE)
  Receive Date: 20111212
  Receipt Date: 20130109
  Transmission Date: 20140127
  Serious: Yes (Death, Life-Threatening, Hospitalization)
  Sender: FDA-Public Use
  Company Number: SE-ASTRAZENECA-2011SE74281

PATIENT
  Age: 56 Year
  Sex: Male

DRUGS (8)
  1. CRESTOR [Suspect]
     Indication: ILL-DEFINED DISORDER
     Route: 048
     Dates: start: 20111003, end: 20111029
  2. METOPROLOL [Suspect]
     Indication: ILL-DEFINED DISORDER
     Route: 065
  3. PRONAXEN [Suspect]
     Indication: ILL-DEFINED DISORDER
     Route: 065
  4. SIMPONI [Suspect]
     Indication: ANKYLOSING SPONDYLITIS
     Route: 058
     Dates: start: 20111003
  5. SALAZOPYRIN [Concomitant]
  6. HUMIRA [Concomitant]
  7. ENBREL [Concomitant]
  8. REMICADE [Concomitant]
     Dates: start: 2008

REACTIONS (3)
  - Cardiac failure acute [Fatal]
  - Cholecystitis [Fatal]
  - Presyncope [Fatal]
